FAERS Safety Report 23724703 (Version 2)
Quarter: 2024Q2

REPORT INFORMATION
  Report Type: Report from Study
  Country: JP (occurrence: JP)
  Receive Date: 20240409
  Receipt Date: 20240509
  Transmission Date: 20240715
  Serious: Yes (Hospitalization)
  Sender: FDA-Public Use
  Company Number: JP-JNJFOC-20240219477

PATIENT
  Age: 49 Year
  Sex: Male

DRUGS (9)
  1. BOSENTAN [Suspect]
     Active Substance: BOSENTAN
     Indication: Skin ulcer
     Dosage: IN THE MORNING AND EVENING
     Route: 048
     Dates: start: 20210824, end: 20220131
  2. BOSENTAN [Suspect]
     Active Substance: BOSENTAN
     Dosage: IN THE MORNING, AFTERNOON AND EVENING
     Route: 048
     Dates: start: 20220201, end: 20220523
  3. BOSENTAN [Suspect]
     Active Substance: BOSENTAN
     Dosage: IN THE MORNING AND EVENING
     Route: 048
     Dates: start: 20220524, end: 202304
  4. BERAPROST SODIUM [Suspect]
     Active Substance: BERAPROST SODIUM
     Indication: Systemic scleroderma
     Route: 048
     Dates: start: 20210824, end: 20211018
  5. BERAPROST SODIUM [Suspect]
     Active Substance: BERAPROST SODIUM
     Indication: Systemic scleroderma
     Route: 048
     Dates: start: 20211019, end: 202304
  6. LOCOID [Concomitant]
     Active Substance: HYDROCORTISONE BUTYRATE
     Indication: Eczema
     Dosage: Q.S.
     Route: 061
     Dates: start: 20210907, end: 20210921
  7. MOMETASONE [Concomitant]
     Active Substance: MOMETASONE
     Indication: Eczema
     Dosage: Q.S.
     Route: 061
     Dates: start: 20210907, end: 20210921
  8. TOCOPHERYL NICOTINATE, D-.ALPHA. [Concomitant]
     Active Substance: TOCOPHERYL NICOTINATE, D-.ALPHA.
     Indication: Systemic scleroderma
     Route: 048
     Dates: start: 20211116, end: 20220131
  9. CELECOXIB [Concomitant]
     Active Substance: CELECOXIB
     Indication: Pain in extremity
     Route: 048
     Dates: start: 20210824, end: 202304

REACTIONS (4)
  - Brain stem haemorrhage [Recovered/Resolved]
  - Eczema [Recovered/Resolved]
  - Hyperkeratosis [Recovering/Resolving]
  - Off label use [Recovered/Resolved]

NARRATIVE: CASE EVENT DATE: 20210907
